FAERS Safety Report 5309948-7 (Version None)
Quarter: 2007Q2

REPORT INFORMATION
  Report Type: 
  Country: None (occurrence: None)
  Receive Date: 20070427
  Receipt Date: 20070418
  Transmission Date: 20071010
  Serious: Yes (Hospitalization, Other)
  Sender: FDA-Public Use
  Company Number: US-ELI_LILLY_AND_COMPANY-US200704004016

PATIENT
  Age: 43 Year
  Sex: Female

DRUGS (1)
  1. FORTEO [Suspect]
     Indication: BONE DENSITY DECREASED

REACTIONS (4)
  - JOINT ARTHROPLASTY [None]
  - KNEE ARTHROPLASTY [None]
  - LOWER LIMB FRACTURE [None]
  - STAPHYLOCOCCAL INFECTION [None]
